FAERS Safety Report 8134441-6 (Version None)
Quarter: 2012Q1

REPORT INFORMATION
  Report Type: 
  Country: None (occurrence: None)
  Receive Date: 20120214
  Receipt Date: 20120214
  Transmission Date: 20120608
  Serious: No
  Sender: FDA-Public Use
  Company Number: None

PATIENT
  Age: 54 Year
  Sex: Female
  Weight: 104.32 kg

DRUGS (2)
  1. ONDANSETRON [Suspect]
     Indication: NAUSEA
     Dosage: 1 4MG TABLET
     Route: 060
     Dates: start: 20120123, end: 20120123
  2. ONDANSETRON [Suspect]
     Indication: VOMITING
     Dosage: 1 4MG TABLET
     Route: 060
     Dates: start: 20120123, end: 20120123

REACTIONS (1)
  - PRODUCT SOLUBILITY ABNORMAL [None]
